FAERS Safety Report 9116878 (Version 2)
Quarter: 2013Q1

REPORT INFORMATION
  Report Type: Spontaneous
  Country: MX (occurrence: MX)
  Receive Date: 20130225
  Receipt Date: 20130301
  Transmission Date: 20140127
  Serious: Yes (Other)
  Sender: FDA-Public Use
  Company Number: PHHY2013MX017228

PATIENT
  Sex: Male

DRUGS (2)
  1. EXFORGE [Suspect]
     Indication: HYPERTENSION
     Dosage: 1 DF, DAILY
     Dates: start: 20100819
  2. ZELMAC [Concomitant]
     Indication: IRRITABLE BOWEL SYNDROME
     Dosage: 2 DF, DAILY
     Route: 048
     Dates: start: 20121022

REACTIONS (2)
  - Oesophageal varices haemorrhage [Recovered/Resolved]
  - Hepatic cirrhosis [Not Recovered/Not Resolved]
